FAERS Safety Report 5672143-6 (Version None)
Quarter: 2008Q2

REPORT INFORMATION
  Report Type: 
  Country: None (occurrence: None)
  Receive Date: 20080219
  Receipt Date: 20071214
  Transmission Date: 20081010
  Serious: No
  Sender: FDA-Public Use
  Company Number: TPA2007A02507

PATIENT
  Sex: Male

DRUGS (2)
  1. ROZEREM [Suspect]
     Indication: MIDDLE INSOMNIA
     Dosage: AT LUNCH TIME, PER ORAL
     Route: 048
     Dates: start: 20071001
  2. ACTOS [Suspect]
     Indication: DRUG USE FOR UNKNOWN INDICATION
     Dosage: 1 IN 1 D, PER ORAL
     Route: 048

REACTIONS (2)
  - DRUG INEFFECTIVE [None]
  - SOMNOLENCE [None]
